FAERS Safety Report 18298680 (Version 4)
Quarter: 2021Q2

REPORT INFORMATION
  Report Type: Spontaneous
  Country: US (occurrence: US)
  Receive Date: 20200922
  Receipt Date: 20210422
  Transmission Date: 20210717
  Serious: Yes (Death, Other)
  Sender: FDA-Public Use
  Company Number: US-PFIZER INC-2020364917

PATIENT
  Age: 73 Year
  Sex: Male

DRUGS (1)
  1. IBRANCE [Suspect]
     Active Substance: PALBOCICLIB
     Indication: PROSTATE CANCER
     Dosage: 125 MG

REACTIONS (6)
  - Death [Fatal]
  - Product use in unapproved indication [Unknown]
  - Cardiac disorder [Unknown]
  - Neoplasm progression [Unknown]
  - Off label use [Unknown]
  - Blood glucose increased [Unknown]

NARRATIVE: CASE EVENT DATE: 20210402
